FAERS Safety Report 5676707-5 (Version None)
Quarter: 2008Q2

REPORT INFORMATION
  Report Type: 
  Country: None (occurrence: None)
  Receive Date: 20080310
  Receipt Date: 20070209
  Transmission Date: 20081010
  Serious: Yes (Other)
  Sender: FDA-Public Use
  Company Number: M7001-00454-SPO-US

PATIENT
  Age: 63 Year
  Sex: Male
  Weight: 86 kg

DRUGS (2)
  1. TARGRETIN [Suspect]
     Indication: LYMPHOMA
     Dosage: 150 MG, QD, ORAL
     Route: 048
     Dates: start: 20061115, end: 20061212
  2. TARGRETIN [Suspect]
     Indication: MYCOSIS FUNGOIDES
     Dosage: 150 MG, QD, ORAL
     Route: 048
     Dates: start: 20061115, end: 20061212

REACTIONS (1)
  - DISEASE PROGRESSION [None]
